FAERS Safety Report 21950215 (Version 1)
Quarter: 2023Q1

REPORT INFORMATION
  Report Type: Spontaneous
  Country: US (occurrence: None)
  Receive Date: 20230202
  Receipt Date: 20230202
  Transmission Date: 20230417
  Serious: Yes (Hospitalization, Other)
  Sender: FDA-Public Use
  Company Number: None

PATIENT
  Age: 30 Year
  Sex: Female
  Weight: 57.15 kg

DRUGS (6)
  1. CELECOXIB [Suspect]
     Active Substance: CELECOXIB
     Indication: Osteoarthritis
     Dosage: OTHER QUANTITY : 180 CAPSULE(S);?FREQUENCY : TWICE A DAY;?
     Route: 048
     Dates: start: 20220831, end: 20230119
  2. PROZAC [Concomitant]
     Active Substance: FLUOXETINE HYDROCHLORIDE
  3. VISTRIL [Concomitant]
  4. DIAZEPAM [Concomitant]
     Active Substance: DIAZEPAM
  5. IRON [Concomitant]
     Active Substance: IRON
  6. B-12 [Concomitant]

REACTIONS (7)
  - Drug ineffective [None]
  - Dizziness [None]
  - Dizziness [None]
  - Abdominal pain upper [None]
  - Haematochezia [None]
  - Diarrhoea [None]
  - Peptic ulcer [None]

NARRATIVE: CASE EVENT DATE: 20230119
